FAERS Safety Report 17901226 (Version 1)
Quarter: 2020Q2

REPORT INFORMATION
  Report Type: Report from Study
  Country: None (occurrence: DE)
  Receive Date: 20200616
  Receipt Date: 20200616
  Transmission Date: 20200714
  Serious: Yes (Hospitalization)
  Sender: FDA-Public Use
  Company Number: DE-ABBVIE-20K-062-3443566-00

PATIENT
  Age: 74 Year
  Sex: Female
  Weight: 70 kg

DRUGS (1)
  1. MAVIRET [Suspect]
     Active Substance: GLECAPREVIR\PIBRENTASVIR
     Indication: CHRONIC HEPATITIS C
     Dosage: 100 MG GLECAPREVIR/40 MG PIBRENTASVIR TABLETS
     Route: 048
     Dates: start: 20191020, end: 20200109

REACTIONS (1)
  - Vestibular disorder [Recovered/Resolved]

NARRATIVE: CASE EVENT DATE: 2020
